FAERS Safety Report 6527506-3 (Version None)
Quarter: 2010Q1

REPORT INFORMATION
  Report Type: 
  Country: None (occurrence: None)
  Receive Date: 20100105
  Receipt Date: 20091222
  Transmission Date: 20100710
  Serious: Yes (Hospitalization)
  Sender: FDA-Public Use
  Company Number: NZ-MYLANLABS-2009S1021833

PATIENT
  Age: 48 Year
  Sex: Female

DRUGS (4)
  1. PHENYTOIN [Interacting]
     Indication: EPILEPSY
     Dosage: 400 MG/DAY
  2. LEVOTHYROXINE SODIUM [Suspect]
     Indication: HYPOTHYROIDISM
     Dosage: 250 MICROG/DAY
  3. LEVOTHYROXINE SODIUM [Interacting]
     Dosage: 200 MICROG/DAY
  4. CARBAMAZEPINE [Concomitant]
     Indication: EPILEPSY
     Dosage: 500MG TWICE DAILY

REACTIONS (3)
  - ANTICONVULSANT DRUG LEVEL ABOVE THERAPEUTIC [None]
  - DRUG INTERACTION [None]
  - HYPOTHYROIDISM [None]
